FAERS Safety Report 6784635-7 (Version None)
Quarter: 2010Q2

REPORT INFORMATION
  Report Type: 
  Country: None (occurrence: None)
  Receive Date: 20100520
  Receipt Date: 20090813
  Transmission Date: 20101027
  Serious: Yes (Other)
  Sender: FDA-Public Use
  Company Number: 2009255076

PATIENT
  Age: 54 Year
  Sex: Female

DRUGS (6)
  1. PROVERA [Suspect]
     Indication: HORMONE REPLACEMENT THERAPY
     Dosage: ORAL
     Route: 048
     Dates: start: 19880101, end: 20000101
  2. PREMARIN [Suspect]
     Indication: HORMONE REPLACEMENT THERAPY
     Dosage: 0.9 MG
     Dates: start: 19890101, end: 20000101
  3. DICYCLOMINE [Concomitant]
  4. NIZATIDINE [Concomitant]
  5. ASPIRIN [Concomitant]
  6. PRAVACHOL [Concomitant]

REACTIONS (1)
  - BREAST CANCER FEMALE [None]
